FAERS Safety Report 12118202 (Version 1)
Quarter: 2016Q1

REPORT INFORMATION
  Report Type: Spontaneous
  Country: BR (occurrence: BR)
  Receive Date: 20160226
  Receipt Date: 20160226
  Transmission Date: 20160526
  Serious: Yes (Other)
  Sender: FDA-Public Use
  Company Number: BR-TORRENT-00003321

PATIENT
  Age: 72 Year
  Sex: Female
  Weight: 50 kg

DRUGS (2)
  1. CRESTOR [Concomitant]
     Active Substance: ROSUVASTATIN CALCIUM
     Indication: BLOOD CHOLESTEROL INCREASED
     Dosage: ONCE DAILY/ORAL
     Route: 048
     Dates: start: 2002
  2. LAMITOR [Suspect]
     Active Substance: LAMOTRIGINE
     Indication: SEIZURE
     Dosage: ONCE IN THE MORNING AND ONCE AT NIGHT/ORAL
     Route: 048
     Dates: start: 2015

REACTIONS (3)
  - Condition aggravated [Not Recovered/Not Resolved]
  - Negative thoughts [Not Recovered/Not Resolved]
  - Tooth abscess [Not Recovered/Not Resolved]

NARRATIVE: CASE EVENT DATE: 2015
